FAERS Safety Report 16531804 (Version 1)
Quarter: 2019Q3

REPORT INFORMATION
  Report Type: Other
  Country: DE (occurrence: DE)
  Receive Date: 20190704
  Receipt Date: 20190704
  Transmission Date: 20191004
  Serious: Yes (Hospitalization, Congenital Anomaly, Other)
  Sender: FDA-Public Use
  Company Number: DE-AUROBINDO-AUR-APL-2012-04470

PATIENT

DRUGS (8)
  1. METFORMIN AUROBINDO FILMCOATED TABLETS 500MG [Suspect]
     Active Substance: METFORMIN HYDROCHLORIDE
     Indication: TYPE 2 DIABETES MELLITUS
     Dosage: UNK UNK,UNK,
     Route: 064
     Dates: start: 20090709, end: 20100126
  2. RAMIPRIL. [Suspect]
     Active Substance: RAMIPRIL
     Indication: HYPERTENSION
     Dosage: UNK UNK,UNK,
     Route: 064
     Dates: start: 20090709, end: 20100126
  3. DOPEGYT [Suspect]
     Active Substance: METHYLDOPA
     Dosage: 250 MG, 3X/DAY (TID)
     Route: 064
     Dates: start: 20100126, end: 20100210
  4. PROTAPHANE [Concomitant]
     Active Substance: INSULIN HUMAN
     Indication: TYPE 2 DIABETES MELLITUS
     Dosage: UNK UNK,UNK,,30 IE/DAY
     Route: 064
     Dates: start: 20100126, end: 20100210
  5. METOPROLOL. [Concomitant]
     Active Substance: METOPROLOL
     Indication: HYPERTENSION
     Dosage: UNK UNK,UNK,
     Route: 064
     Dates: start: 20090709, end: 20100126
  6. NOVORAPID [Concomitant]
     Active Substance: INSULIN ASPART
     Indication: TYPE 2 DIABETES MELLITUS
     Dosage: UNK UNK,UNK,,52 IE/DAY
     Route: 064
     Dates: start: 20100126, end: 20100210
  7. DOPEGYT [Suspect]
     Active Substance: METHYLDOPA
     Indication: HYPERTENSION
     Dosage: 250 MG,3 TIMES A DAY,
     Route: 064
     Dates: start: 20100126, end: 20100210
  8. NOVORAPID [Concomitant]
     Active Substance: INSULIN ASPART
     Dosage: UNK UNK,DAILY,,52 IE
     Route: 064
     Dates: start: 20100126, end: 20100210

REACTIONS (14)
  - Atrial septal defect [Not Recovered/Not Resolved]
  - Cardiac failure [Unknown]
  - Foetal exposure during pregnancy [Unknown]
  - Foetal monitoring abnormal [Unknown]
  - Neonatal respiratory distress syndrome [Recovered/Resolved]
  - Bicuspid aortic valve [Not Recovered/Not Resolved]
  - Mitral valve incompetence [Not Recovered/Not Resolved]
  - Premature baby [Unknown]
  - Pulmonary hypertension [Unknown]
  - Oliguria [Unknown]
  - Aortic valve incompetence [Recovered/Resolved with Sequelae]
  - Maternal exposure during pregnancy [Recovered/Resolved]
  - Congenital aortic valve stenosis [Recovered/Resolved with Sequelae]
  - Patent ductus arteriosus [Recovered/Resolved]

NARRATIVE: CASE EVENT DATE: 20100126
